FAERS Safety Report 8483944-3 (Version None)
Quarter: 2012Q3

REPORT INFORMATION
  Report Type: 
  Country: None (occurrence: None)
  Receive Date: 20120703
  Receipt Date: 20120626
  Transmission Date: 20120928
  Serious: No
  Sender: FDA-Public Use
  Company Number: US-PFIZER INC-2012154910

PATIENT
  Age: 48 Year
  Sex: Female

DRUGS (6)
  1. FENTANYL [Suspect]
     Dosage: 50 MG PATCH
  2. ROBAXIN [Suspect]
     Dosage: UNK
  3. PERCOCET [Suspect]
     Dosage: UNK
  4. RIMADYL [Suspect]
  5. LYRICA [Suspect]
     Dosage: UNK
  6. CYMBALTA [Suspect]
     Dosage: UNK

REACTIONS (2)
  - SOMNOLENCE [None]
  - WRONG DRUG ADMINISTERED [None]
